FAERS Safety Report 21712994 (Version 8)
Quarter: 2025Q1

REPORT INFORMATION
  Report Type: Spontaneous
  Country: JP (occurrence: JP)
  Receive Date: 20221212
  Receipt Date: 20250225
  Transmission Date: 20250409
  Serious: Yes (Hospitalization, Other)
  Sender: BRISTOL-MYERS SQUIBB COMPANY
  Company Number: JP-ONO-2022JP032598

PATIENT
  Age: 59 Year
  Sex: Male

DRUGS (2)
  1. YERVOY [Suspect]
     Active Substance: IPILIMUMAB
     Indication: Malignant melanoma
     Route: 041
  2. OPDIVO [Suspect]
     Active Substance: NIVOLUMAB
     Indication: Malignant melanoma
     Route: 041

REACTIONS (8)
  - Immune-mediated dermatitis [Recovering/Resolving]
  - Immune-mediated thyroiditis [Unknown]
  - Autoimmune pancreatitis [Recovering/Resolving]
  - Fulminant type 1 diabetes mellitus [Unknown]
  - Enterocolitis [Recovering/Resolving]
  - Adrenocorticotropic hormone deficiency [Unknown]
  - Leukoderma [Unknown]
  - Immune-mediated hypophysitis [Unknown]
